FAERS Safety Report 9515046 (Version 1)
Quarter: 2013Q3

REPORT INFORMATION
  Report Type: Spontaneous
  Country: FR (occurrence: FR)
  Receive Date: 20130911
  Receipt Date: 20130911
  Transmission Date: 20140515
  Serious: Yes (Other)
  Sender: FDA-Public Use
  Company Number: FR-JNJFOC-20130902376

PATIENT
  Age: 33 Year
  Sex: Female

DRUGS (1)
  1. XEPLION [Suspect]
     Indication: PRODUCT USED FOR UNKNOWN INDICATION
     Dosage: FEB-2013/MAR-2013
     Route: 030
     Dates: start: 2013

REACTIONS (1)
  - Exposure during pregnancy [Unknown]
